FAERS Safety Report 19526471 (Version 1)
Quarter: 2021Q3

REPORT INFORMATION
  Report Type: Spontaneous
  Country: US (occurrence: US)
  Receive Date: 20210706
  Receipt Date: 20210706
  Transmission Date: 20211014
  Serious: Yes (Hospitalization)
  Sender: FDA-Public Use
  Company Number: None

PATIENT
  Age: 73 Year
  Sex: Male
  Weight: 99.34 kg

DRUGS (11)
  1. ENZALUTAMIDE 160MG [Suspect]
     Active Substance: ENZALUTAMIDE
     Indication: PROSTATE CANCER
     Route: 048
     Dates: start: 20210115
  2. PEMBROLIZUMAB 200MG [Suspect]
     Active Substance: PEMBROLIZUMAB
     Indication: PROSTATE CANCER
     Route: 042
     Dates: start: 20210115, end: 20210409
  3. ZINC OXIDE OINTMENT [Concomitant]
  4. DICLOFENAC NA 1# GEL [Concomitant]
  5. ESCITALOPRAM OXALATE. [Concomitant]
     Active Substance: ESCITALOPRAM OXALATE
  6. GABAPENTIN. [Concomitant]
     Active Substance: GABAPENTIN
  7. POLYETHYLENE GLYCOL [Concomitant]
     Active Substance: POLYETHYLENE GLYCOLS
  8. LIDOCAINE 5% [Concomitant]
     Active Substance: LIDOCAINE
  9. CAMPHOR/MENTHOL [Concomitant]
  10. DOXYCYCLINE HYCLATE. [Concomitant]
     Active Substance: DOXYCYCLINE HYCLATE
  11. HYDROCODONE/ACETAMINOPHEN [Concomitant]
     Active Substance: ACETAMINOPHEN\HYDROCODONE

REACTIONS (4)
  - Arthralgia [None]
  - Urinary tract infection [None]
  - Pelvic venous thrombosis [None]
  - Groin pain [None]

NARRATIVE: CASE EVENT DATE: 20210625
